FAERS Safety Report 4790411-7 (Version None)
Quarter: 2005Q4

REPORT INFORMATION
  Report Type: 
  Country: None (occurrence: None)
  Receive Date: 20051006
  Receipt Date: 20050921
  Transmission Date: 20060501
  Serious: Yes (Other)
  Sender: FDA-Public Use
  Company Number: GBWYE996521SEP05

PATIENT
  Age: 67 Year
  Sex: Female
  Weight: 72.2 kg

DRUGS (6)
  1. ENBREL [Suspect]
     Indication: RHEUMATOID ARTHRITIS
     Route: 058
     Dates: start: 20050428, end: 20050805
  2. FOLIC ACID [Concomitant]
     Dates: start: 19980101
  3. NABUMETONE [Concomitant]
     Dosage: UNKNOWN
     Dates: start: 20040101
  4. AMITRIPTYLINE HCL [Concomitant]
  5. ZIMOVANE [Concomitant]
  6. METHOTREXATE [Concomitant]
     Dates: start: 19980101

REACTIONS (1)
  - ALANINE AMINOTRANSFERASE INCREASED [None]
